FAERS Safety Report 17002549 (Version 2)
Quarter: 2019Q4

REPORT INFORMATION
  Report Type: Spontaneous
  Country: US (occurrence: US)
  Receive Date: 20191107
  Receipt Date: 20191126
  Transmission Date: 20200122
  Serious: Yes (Other)
  Sender: FDA-Public Use
  Company Number: US-FDC LIMITED-2019RIS00561

PATIENT
  Age: 61 Year
  Sex: Female
  Weight: 90.7 kg

DRUGS (5)
  1. ALENDRONATE SODIUM. [Concomitant]
     Active Substance: ALENDRONATE SODIUM
     Dosage: UNK, 1X/WEEK
  2. TIMOLOL MALEATE. [Suspect]
     Active Substance: TIMOLOL MALEATE
     Indication: GLAUCOMA
     Dosage: 1 DROP TO EACH EYE, 2X/DAY
     Route: 047
  3. MULTIVITAMIN [Concomitant]
     Active Substance: VITAMINS
  4. SYNTHROID [Concomitant]
     Active Substance: LEVOTHYROXINE SODIUM
     Dosage: 1 DOSAGE UNITS, 1X/DAY
  5. VITAMIN D [Concomitant]
     Active Substance: VITAMIN D NOS

REACTIONS (6)
  - Vision blurred [Recovering/Resolving]
  - Lacrimation increased [Recovering/Resolving]
  - Eye pain [Recovered/Resolved]
  - Foreign body in eye [Recovered/Resolved]
  - Eye swelling [Recovering/Resolving]
  - Eyelid function disorder [Recovering/Resolving]

NARRATIVE: CASE EVENT DATE: 20191021
